FAERS Safety Report 8185583 (Version 3)
Quarter: 2013Q3

REPORT INFORMATION
  Report Type: Spontaneous
  Country: US (occurrence: US)
  Receive Date: 20111018
  Receipt Date: 20130822
  Transmission Date: 20140515
  Serious: Yes (Other)
  Sender: FDA-Public Use
  Company Number: US-ASTRAZENECA-2010SE55588

PATIENT
  Age: 76 Year
  Sex: Female
  Weight: 92.1 kg

DRUGS (3)
  1. SYMBICORT PMDI [Suspect]
     Indication: ASTHMA
     Dosage: 160/4.5 MCG 1 PUFF TWO TIMEAS A DAY
     Route: 055
     Dates: start: 2008, end: 201009
  2. SYMBICORT PMDI [Suspect]
     Indication: BRONCHITIS CHRONIC
     Dosage: 160/4.5 MCG 1 PUFF TWO TIMEAS A DAY
     Route: 055
     Dates: start: 2008, end: 201009
  3. ALEVE [Concomitant]
     Indication: PAIN
     Route: 048

REACTIONS (10)
  - Malaise [Unknown]
  - Weight increased [Unknown]
  - Arthropathy [Unknown]
  - Joint effusion [Unknown]
  - Productive cough [Unknown]
  - Fibromyalgia [Unknown]
  - Dyspnoea [Unknown]
  - Aphonia [Recovering/Resolving]
  - Papule [Unknown]
  - Drug dose omission [Unknown]
